FAERS Safety Report 19164191 (Version 1)
Quarter: 2021Q2

REPORT INFORMATION
  Report Type: Spontaneous
  Country: US (occurrence: US)
  Receive Date: 20210421
  Receipt Date: 20210421
  Transmission Date: 20210717
  Serious: No
  Sender: FDA-Public Use
  Company Number: US-DRREDDYS-USA/USA/21/0134558

PATIENT
  Age: 65 Year
  Sex: Female

DRUGS (3)
  1. BIVALIRUDIN INJECTION [Suspect]
     Active Substance: BIVALIRUDIN
     Dosage: 0.25 MG/KG/H
     Route: 042
  2. BIVALIRUDIN INJECTION [Suspect]
     Active Substance: BIVALIRUDIN
     Indication: ANTICOAGULANT THERAPY
     Dosage: 0.15 MG/KG/H
     Route: 042
  3. BIVALIRUDIN INJECTION [Suspect]
     Active Substance: BIVALIRUDIN
     Dosage: 0.16 MG/KG/H
     Route: 042

REACTIONS (1)
  - Product use in unapproved indication [Unknown]
